FAERS Safety Report 5003379-5 (Version None)
Quarter: 2006Q1

REPORT INFORMATION
  Report Type: 
  Country: None (occurrence: None)
  Receive Date: 20060317
  Receipt Date: 20050524
  Transmission Date: 20060701
  Serious: Yes (Hospitalization)
  Sender: FDA-Public Use
  Company Number: 200514579US

PATIENT
  Sex: Female

DRUGS (1)
  1. CLOMID [Suspect]
     Dosage: 150 MG TID
     Dates: start: 20050522, end: 20050523

REACTIONS (3)
  - ABDOMINAL PAIN [None]
  - AGITATION [None]
  - VAGINAL HAEMORRHAGE [None]
